FAERS Safety Report 11755719 (Version 1)
Quarter: 2015Q4

REPORT INFORMATION
  Report Type: Spontaneous
  Country: US (occurrence: None)
  Receive Date: 20151118
  Receipt Date: 20151118
  Transmission Date: 20160304
  Serious: Yes (Disabling, Other)
  Sender: FDA-Public Use
  Company Number: None

PATIENT
  Age: 32 Year
  Sex: Female
  Weight: 76.2 kg

DRUGS (1)
  1. MIRENA [Suspect]
     Active Substance: LEVONORGESTREL
     Indication: CONTRACEPTION
     Route: 067
     Dates: start: 20130313, end: 20151117

REACTIONS (9)
  - Headache [None]
  - Cardiac flutter [None]
  - Complication of device removal [None]
  - Procedural pain [None]
  - Blindness transient [None]
  - Vision blurred [None]
  - Memory impairment [None]
  - Embedded device [None]
  - Head discomfort [None]

NARRATIVE: CASE EVENT DATE: 20151117
